FAERS Safety Report 4734295-1 (Version None)
Quarter: 2005Q3

REPORT INFORMATION
  Report Type: 
  Country: None (occurrence: None)
  Receive Date: 20050729
  Receipt Date: 20050708
  Transmission Date: 20060218
  Serious: Yes (Other)
  Sender: FDA-Public Use
  Company Number: USA0507102297

PATIENT
  Age: 52 Year
  Sex: Female

DRUGS (1)
  1. PROZAC [Suspect]

REACTIONS (3)
  - DRUG EFFECT DECREASED [None]
  - GASTRIC OPERATION [None]
  - POST PROCEDURAL COMPLICATION [None]
